APPROVED DRUG PRODUCT: PROMETHAZINE HYDROCHLORIDE
Active Ingredient: PROMETHAZINE HYDROCHLORIDE
Strength: 50MG
Dosage Form/Route: TABLET;ORAL
Application: A085146 | Product #002
Applicant: RISING PHARMA HOLDING INC
Approved: Approved Prior to Jan 1, 1982 | RLD: No | RS: No | Type: DISCN